FAERS Safety Report 24277925 (Version 1)
Quarter: 2024Q3

REPORT INFORMATION
  Report Type: Spontaneous
  Country: US (occurrence: None)
  Receive Date: 20240830
  Receipt Date: 20240830
  Transmission Date: 20241017
  Serious: Yes (Hospitalization)
  Sender: Public
  Company Number: None

PATIENT
  Sex: Female

DRUGS (1)
  1. LORBRENA [Suspect]
     Active Substance: LORLATINIB
     Indication: Lung carcinoma cell type unspecified stage 0
     Dosage: FREQUENCY : DAILY;?
     Route: 048
     Dates: start: 202310

REACTIONS (8)
  - Brain neoplasm [None]
  - Swelling [None]
  - Pain in extremity [None]
  - Neck pain [None]
  - Oedema [None]
  - Skin hyperpigmentation [None]
  - Gait disturbance [None]
  - Therapy change [None]
